FAERS Safety Report 18929109 (Version 2)
Quarter: 2021Q1

REPORT INFORMATION
  Report Type: Spontaneous
  Country: US (occurrence: US)
  Receive Date: 20210223
  Receipt Date: 20210304
  Transmission Date: 20210420
  Serious: Yes (Other)
  Sender: FDA-Public Use
  Company Number: US-PFIZER INC-2021138248

PATIENT
  Age: 58 Year
  Sex: Female

DRUGS (2)
  1. RUXIENCE [Suspect]
     Active Substance: RITUXIMAB-PVVR
     Indication: CHRONIC LYMPHOCYTIC LEUKAEMIA
     Dosage: UNK
  2. ALLOPURINOL. [Concomitant]
     Active Substance: ALLOPURINOL
     Indication: TUMOUR LYSIS SYNDROME
     Dosage: UNK

REACTIONS (12)
  - White blood cell count decreased [Unknown]
  - Swelling face [Unknown]
  - Stomatitis [Unknown]
  - Arthralgia [Unknown]
  - Eye swelling [Unknown]
  - Fatigue [Unknown]
  - Pharyngeal disorder [Unknown]
  - Joint swelling [Unknown]
  - Lymph node pain [Unknown]
  - Malaise [Unknown]
  - Muscle spasms [Unknown]
  - Product dose omission issue [Unknown]
